FAERS Safety Report 16799644 (Version 1)
Quarter: 2019Q3

REPORT INFORMATION
  Report Type: Spontaneous
  Country: US (occurrence: US)
  Receive Date: 20190912
  Receipt Date: 20190912
  Transmission Date: 20191005
  Serious: Yes (Death)
  Sender: FDA-Public Use
  Company Number: US-ARRAY-2019-06308

PATIENT

DRUGS (4)
  1. BRAFTOVI [Suspect]
     Active Substance: ENCORAFENIB
     Indication: METASTASES TO LUNG
  2. BRAFTOVI [Suspect]
     Active Substance: ENCORAFENIB
     Indication: METASTASES TO CENTRAL NERVOUS SYSTEM
     Dosage: 450 MG, QD
     Route: 048
     Dates: start: 20181201
  3. MEKTOVI [Suspect]
     Active Substance: BINIMETINIB
     Indication: METASTASES TO CENTRAL NERVOUS SYSTEM
     Dosage: 45 MG, QD
     Route: 048
     Dates: start: 20181201
  4. MEKTOVI [Suspect]
     Active Substance: BINIMETINIB
     Indication: METASTASES TO LUNG

REACTIONS (2)
  - Death [Fatal]
  - Off label use [Unknown]

NARRATIVE: CASE EVENT DATE: 20181201
